FAERS Safety Report 9378431 (Version 2)
Quarter: 2014Q2

REPORT INFORMATION
  Report Type: Report from Study
  Country: US (occurrence: US)
  Receive Date: 20130701
  Receipt Date: 20140415
  Transmission Date: 20141212
  Serious: Yes (Life-Threatening, Hospitalization)
  Sender: FDA-Public Use
  Company Number: PHHY2013US041364

PATIENT
  Age: 73 Year
  Sex: Male

DRUGS (6)
  1. EVEROLIMUS [Suspect]
     Indication: PANCREATIC NEUROENDOCRINE TUMOUR
     Dosage: 15 MG, DAILY
     Dates: start: 20130224
  2. EVEROLIMUS [Suspect]
     Dosage: 10 MG, QD
     Route: 048
     Dates: start: 20130326
  3. OCTREOTIDE [Suspect]
     Indication: PANCREATIC NEUROENDOCRINE TUMOUR
     Dosage: 20 MG
     Route: 030
     Dates: start: 20130222
  4. BEVACIZUMAB [Suspect]
     Indication: PANCREATIC NEUROENDOCRINE TUMOUR
     Dosage: 735 MG, DAILY
     Route: 042
     Dates: start: 20130222, end: 20130224
  5. BEVACIZUMAB [Suspect]
     Dosage: 10 MG/KG
     Route: 042
     Dates: start: 20130326
  6. ASPIRIN [Suspect]
     Dosage: 81 MG, QD

REACTIONS (13)
  - Cardiac failure congestive [Recovering/Resolving]
  - Ejection fraction decreased [Recovering/Resolving]
  - Chest discomfort [Recovering/Resolving]
  - Dizziness [Recovering/Resolving]
  - Dyspnoea [Recovering/Resolving]
  - Hypertension [Recovering/Resolving]
  - Pyrexia [Recovering/Resolving]
  - Lung infiltration [Recovering/Resolving]
  - Pleural effusion [Recovering/Resolving]
  - Duodenal ulcer [Recovering/Resolving]
  - Upper gastrointestinal haemorrhage [Recovering/Resolving]
  - Fall [Unknown]
  - Joint injury [Unknown]
